FAERS Safety Report 15194865 (Version 1)
Quarter: 2018Q3

REPORT INFORMATION
  Report Type: Spontaneous
  Country: US (occurrence: US)
  Receive Date: 20180725
  Receipt Date: 20180725
  Transmission Date: 20181010
  Serious: No
  Sender: FDA-Public Use
  Company Number: US-GLAXOSMITHKLINE-US2018129075

PATIENT
  Age: 61 Year
  Sex: Female
  Weight: 48 kg

DRUGS (1)
  1. NICODERM CQ [Suspect]
     Active Substance: NICOTINE
     Indication: SMOKING CESSATION THERAPY
     Dosage: 14 MG, UNK
     Route: 061
     Dates: start: 20180704, end: 20180718

REACTIONS (5)
  - Hypersensitivity [Recovered/Resolved]
  - Application site pain [Recovered/Resolved]
  - Application site paraesthesia [Unknown]
  - Application site irritation [Recovered/Resolved]
  - Application site rash [Recovered/Resolved]

NARRATIVE: CASE EVENT DATE: 20180714
